FAERS Safety Report 6302001-5 (Version None)
Quarter: 2009Q3

REPORT INFORMATION
  Report Type: 
  Country: None (occurrence: None)
  Receive Date: 20090807
  Receipt Date: 20090729
  Transmission Date: 20100115
  Serious: Yes (Hospitalization)
  Sender: FDA-Public Use
  Company Number: FR-PFIZER INC-2009194794

PATIENT
  Age: 88 Year

DRUGS (6)
  1. CELEBREX [Suspect]
     Route: 048
  2. KARDEGIC [Interacting]
     Route: 048
  3. TAREG [Concomitant]
  4. TEMESTA [Concomitant]
  5. FENOFIBRATE [Concomitant]
  6. ACTONEL [Concomitant]

REACTIONS (5)
  - ANAEMIA [None]
  - DRUG INTERACTION [None]
  - GASTRIC ULCER HAEMORRHAGE [None]
  - MELAENA [None]
  - RECTAL HAEMORRHAGE [None]
